FAERS Safety Report 4845602-3 (Version None)
Quarter: 2005Q4

REPORT INFORMATION
  Report Type: 
  Country: None (occurrence: None)
  Receive Date: 20051205
  Receipt Date: 20051125
  Transmission Date: 20060501
  Serious: Yes (Hospitalization)
  Sender: FDA-Public Use
  Company Number: IT-MERCK-0511ITA00027

PATIENT
  Age: 53 Year
  Sex: Female

DRUGS (1)
  1. ZOCOR [Suspect]
     Indication: HYPERCHOLESTEROLAEMIA
     Route: 048
     Dates: start: 20030702, end: 20050701

REACTIONS (3)
  - ABDOMINAL PAIN [None]
  - INTESTINAL DILATATION [None]
  - MYALGIA [None]
